FAERS Safety Report 9806532 (Version 1)
Quarter: 2014Q1

REPORT INFORMATION
  Report Type: Spontaneous
  Country: GB (occurrence: GB)
  Receive Date: 20140109
  Receipt Date: 20140109
  Transmission Date: 20141002
  Serious: Yes (Life-Threatening, Hospitalization, Other)
  Sender: FDA-Public Use
  Company Number: GB-TEVA-454689ISR

PATIENT
  Sex: Female

DRUGS (3)
  1. EPIRUBICIN [Suspect]
     Dosage: 3 CYCLES
     Dates: start: 20130225, end: 20130408
  2. DOCETAXEL [Suspect]
     Dosage: 3 CYCLES
     Dates: start: 20130429, end: 201305
  3. CYCLOPHOSPHAMIDE [Suspect]
     Dosage: 3 CYCLES
     Dates: start: 20130225, end: 20130408

REACTIONS (4)
  - Hypercalcaemia [Unknown]
  - Renal failure acute [Unknown]
  - Pleural effusion [Unknown]
  - Metastases to bone [Unknown]
